FAERS Safety Report 8529171 (Version 2)
Quarter: 2013Q2

REPORT INFORMATION
  Report Type: Spontaneous
  Country: US (occurrence: US)
  Receive Date: 20120425
  Receipt Date: 20130401
  Transmission Date: 20140414
  Serious: Yes (Other)
  Sender: FDA-Public Use
  Company Number: US-UCBSA-055642

PATIENT
  Age: 41 Year
  Sex: Female

DRUGS (3)
  1. CIMZIA [Suspect]
     Indication: CROHN^S DISEASE
     Dosage: 400 MG EVERY 2 TO 3 WEEKS, FOR LOT 61205 EXPIRATION DATE WAS 30/JUN/2013
     Dates: start: 20100205, end: 20130226
  2. PREDNISONE [Concomitant]
  3. PREDNISONE [Concomitant]
     Dates: start: 20110222

REACTIONS (11)
  - Blue toe syndrome [Not Recovered/Not Resolved]
  - Large intestinal ulcer [Unknown]
  - Rash [Recovered/Resolved]
  - Butterfly rash [Not Recovered/Not Resolved]
  - Post gastric surgery syndrome [Not Recovered/Not Resolved]
  - Gastric ulcer [Not Recovered/Not Resolved]
  - Skin injury [Not Recovered/Not Resolved]
  - Contusion [Not Recovered/Not Resolved]
  - Diarrhoea [Unknown]
  - Gastrointestinal tract irritation [Unknown]
  - Drug ineffective [Recovered/Resolved]
